FAERS Safety Report 4683950-0 (Version None)
Quarter: 2005Q2

REPORT INFORMATION
  Report Type: 
  Country: None (occurrence: None)
  Receive Date: 20050607
  Receipt Date: 20050407
  Transmission Date: 20051028
  Serious: Yes (Death)
  Sender: FDA-Public Use
  Company Number: JP-MERCK-0504USA01556

PATIENT
  Age: 87 Year
  Sex: Female
  Weight: 27 kg

DRUGS (15)
  1. FOLIAMIN [Suspect]
     Indication: ANAEMIA
     Route: 048
     Dates: start: 20050319
  2. EPOGIN [Concomitant]
     Indication: NEPHROGENIC ANAEMIA
     Route: 042
  3. PRIMAXIN [Suspect]
     Indication: INFLAMMATION
     Route: 042
     Dates: start: 20050323, end: 20050331
  4. PRIMAXIN [Suspect]
     Route: 042
     Dates: start: 20050302, end: 20050303
  5. PRIMAXIN [Suspect]
     Route: 042
     Dates: start: 20050426, end: 20050503
  6. PRIMAXIN [Suspect]
     Indication: PNEUMONIA
     Route: 042
     Dates: start: 20050323, end: 20050331
  7. PRIMAXIN [Suspect]
     Route: 042
     Dates: start: 20050302, end: 20050303
  8. PRIMAXIN [Suspect]
     Route: 042
     Dates: start: 20050426, end: 20050503
  9. FLAGYL [Suspect]
     Indication: CLOSTRIDIUM COLITIS
     Route: 048
     Dates: start: 20050324, end: 20050404
  10. RENAGEL [Concomitant]
     Route: 048
  11. TAKEPRON [Concomitant]
     Route: 048
  12. ISOSORBIDE DINITRATE [Concomitant]
     Route: 048
  13. CALCITRIOL [Concomitant]
     Route: 048
  14. MUCOSOLVAN [Suspect]
     Route: 048
     Dates: start: 20050307, end: 20050317
  15. WARFARIN POTASSIUM [Suspect]
     Indication: ATRIAL FIBRILLATION
     Route: 048
     Dates: start: 20050307, end: 20050317

REACTIONS (2)
  - BLOOD URINE PRESENT [None]
  - RENAL FAILURE CHRONIC [None]
